FAERS Safety Report 14365646 (Version 6)
Quarter: 2019Q1

REPORT INFORMATION
  Report Type: Report from Study
  Country: DE (occurrence: DE)
  Receive Date: 20180109
  Receipt Date: 20190204
  Transmission Date: 20190417
  Serious: Yes (Hospitalization)
  Sender: FDA-Public Use
  Company Number: DE-ROCHE-2049910

PATIENT
  Age: 92 Year
  Sex: Female

DRUGS (10)
  1. JANUVIA [Concomitant]
     Active Substance: SITAGLIPTIN PHOSPHATE
     Route: 065
     Dates: start: 20020101
  2. VISMODEGIB. [Suspect]
     Active Substance: VISMODEGIB
     Route: 048
     Dates: start: 20180126
  3. NOVAMINSULFON [Concomitant]
     Active Substance: METAMIZOLE
     Route: 065
     Dates: start: 20110101
  4. ALLOPURINOL. [Concomitant]
     Active Substance: ALLOPURINOL
     Route: 065
     Dates: start: 20171201
  5. METFORMIN [Concomitant]
     Active Substance: METFORMIN HYDROCHLORIDE
     Route: 065
     Dates: start: 20020101
  6. HERZ ASS [Concomitant]
     Route: 065
     Dates: start: 20020101
  7. TORASEMID [Concomitant]
     Active Substance: TORSEMIDE
     Route: 065
     Dates: start: 20030101
  8. ATORVASTATIN [Concomitant]
     Active Substance: ATORVASTATIN
     Route: 065
     Dates: start: 20171201
  9. CANDESARTAN. [Concomitant]
     Active Substance: CANDESARTAN
     Route: 065
     Dates: start: 20171201
  10. VISMODEGIB. [Suspect]
     Active Substance: VISMODEGIB
     Indication: BASAL CELL CARCINOMA
     Dosage: DATE OF LAST DOSE OF VISMODEGIB PRIOR TO SERIOUS ADVERSE EVENT (HIP BRUISE): 27/DEC/2017
     Route: 048
     Dates: start: 20171106, end: 20180102

REACTIONS (1)
  - Contusion [Recovered/Resolved]

NARRATIVE: CASE EVENT DATE: 20171231
